FAERS Safety Report 8202952-0 (Version None)
Quarter: 2012Q1

REPORT INFORMATION
  Report Type: 
  Country: None (occurrence: None)
  Receive Date: 20120312
  Receipt Date: 20120308
  Transmission Date: 20120608
  Serious: Yes (Other)
  Sender: FDA-Public Use
  Company Number: DK-PFIZER INC-2012061882

PATIENT

DRUGS (1)
  1. EFFEXOR [Suspect]
     Dosage: 225 MG, 1X/DAY

REACTIONS (1)
  - CONGESTIVE CARDIOMYOPATHY [None]
